FAERS Safety Report 7427008-6 (Version None)
Quarter: 2011Q2

REPORT INFORMATION
  Report Type: 
  Country: None (occurrence: None)
  Receive Date: 20110420
  Receipt Date: 20110411
  Transmission Date: 20111010
  Serious: Yes (Other)
  Sender: FDA-Public Use
  Company Number: PHHY2011IT32621

PATIENT
  Age: 61 Year
  Sex: Female

DRUGS (7)
  1. WARFARIN [Suspect]
     Dosage: UNK UKN, UNK
  2. VITABIOSA [Interacting]
     Dosage: UNK UKN, UNK
  3. FICUS CARICA MOTHER TINCTURE [Interacting]
     Dosage: UNK UKN, UNK
  4. MYCOSA COMPOSITUM [Interacting]
     Dosage: UNK UKN, UNK
  5. COLISOLVE [Interacting]
     Dosage: UNK UKN, UNK
  6. BOSWELLI SERRATA DE [Interacting]
     Dosage: UNK UKN, UNK
  7. HORSE COLOSTRUM [Interacting]
     Dosage: UNK UKN, UNK

REACTIONS (3)
  - DRUG INTERACTION [None]
  - INTERNATIONAL NORMALISED RATIO INCREASED [None]
  - COAGULATION TIME PROLONGED [None]
